FAERS Safety Report 4662331-X (Version None)
Quarter: 2005Q2

REPORT INFORMATION
  Report Type: 
  Country: None (occurrence: None)
  Receive Date: 20050516
  Receipt Date: 20050117
  Transmission Date: 20051028
  Serious: Yes (Hospitalization)
  Sender: FDA-Public Use
  Company Number: US-BOEHRINGER INGELHEIM PHARMMACEUTICALS, INC.-2005-BP-00667BP

PATIENT
  Sex: Female

DRUGS (6)
  1. SPIRIVA [Suspect]
     Indication: CHRONIC OBSTRUCTIVE PULMONARY DISEASE
     Route: 055
     Dates: start: 20041101
  2. SPIRIVA [Suspect]
     Indication: EMPHYSEMA
     Route: 055
     Dates: start: 20041202
  3. PREDNISONE [Concomitant]
     Route: 048
  4. ALBUTEROL/ATROVENT [Concomitant]
     Route: 055
  5. STEROID NEB [Concomitant]
     Route: 055
  6. MONOPRIL [Concomitant]
     Route: 048

REACTIONS (2)
  - ACUTE RESPIRATORY FAILURE [None]
  - DYSPNOEA EXACERBATED [None]
